FAERS Safety Report 18417972 (Version 2)
Quarter: 2021Q2

REPORT INFORMATION
  Report Type: Spontaneous
  Country: CA (occurrence: CA)
  Receive Date: 20201023
  Receipt Date: 20210513
  Transmission Date: 20210717
  Serious: Yes (Other)
  Sender: FDA-Public Use
  Company Number: CA-SAMSUNG BIOEPIS-SB-2020-32126

PATIENT
  Age: 53 Year
  Sex: Female

DRUGS (4)
  1. INFLIXIMAB [Suspect]
     Active Substance: INFLIXIMAB
     Route: 042
  2. INFLIXIMAB [Suspect]
     Active Substance: INFLIXIMAB
     Indication: ANKYLOSING SPONDYLITIS
     Route: 042
  3. INFLIXIMAB [Suspect]
     Active Substance: INFLIXIMAB
     Indication: COLITIS ULCERATIVE
     Route: 042
  4. DILAUDID [Concomitant]
     Active Substance: HYDROMORPHONE HYDROCHLORIDE
     Indication: ABDOMINAL PAIN
     Route: 048

REACTIONS (15)
  - Gallbladder disorder [Unknown]
  - Hypoaesthesia [Unknown]
  - Drug level decreased [Unknown]
  - Weight decreased [Unknown]
  - Inappropriate schedule of product administration [Unknown]
  - Off label use [Unknown]
  - Condition aggravated [Unknown]
  - Headache [Unknown]
  - Drug intolerance [Unknown]
  - Vomiting [Unknown]
  - Arthralgia [Unknown]
  - Malaise [Unknown]
  - Illness [Unknown]
  - Asthenia [Unknown]
  - Back pain [Unknown]
